FAERS Safety Report 7543734-2 (Version None)
Quarter: 2011Q2

REPORT INFORMATION
  Report Type: 
  Country: None (occurrence: None)
  Receive Date: 20110613
  Receipt Date: 20040415
  Transmission Date: 20111010
  Serious: Yes (Death)
  Sender: FDA-Public Use
  Company Number: PHHO2004JP04385

PATIENT
  Sex: Female
  Weight: 48 kg

DRUGS (4)
  1. PRAVASTATIN SODIUM [Concomitant]
     Indication: HYPERLIPIDAEMIA
  2. CONIEL [Concomitant]
     Indication: ESSENTIAL HYPERTENSION
  3. DIOVAN [Suspect]
     Indication: ESSENTIAL HYPERTENSION
     Dosage: 80 MG, DAILY
     Dates: start: 20020125
  4. CALOMIDE [Concomitant]
     Indication: ANAEMIA

REACTIONS (1)
  - MYOCARDIAL INFARCTION [None]
